FAERS Safety Report 11858176 (Version 2)
Quarter: 2015Q4

REPORT INFORMATION
  Report Type: Spontaneous
  Country: ES (occurrence: ES)
  Receive Date: 20151222
  Receipt Date: 20151228
  Transmission Date: 20160305
  Serious: Yes (Hospitalization, Other)
  Sender: FDA-Public Use
  Company Number: ES-VIIV HEALTHCARE LIMITED-ES2015GSK143745

PATIENT
  Age: 48 Year
  Sex: Male
  Weight: 50 kg

DRUGS (7)
  1. VITAMIN D [Concomitant]
     Active Substance: CHOLECALCIFEROL
     Dosage: UNK
  2. ANFOTERICINA [Concomitant]
     Indication: HEPATOSPLENOMEGALY
     Dosage: 4 MG/KG, UNK
     Route: 042
  3. FERROUS SULFATE [Concomitant]
     Active Substance: FERROUS SULFATE\FERROUS SULFATE, DRIED
     Dosage: 80 UNK, 1D
  4. SEPTRIN [Concomitant]
     Active Substance: SULFAMETHOXAZOLE\TRIMETHOPRIM
  5. LEDERFOLIN [Concomitant]
     Active Substance: LEUCOVORIN CALCIUM
  6. TIVICAY [Suspect]
     Active Substance: DOLUTEGRAVIR SODIUM
     Indication: HIV INFECTION
     Dosage: 1 DF, 1D
     Route: 048
     Dates: start: 201505, end: 20150909
  7. KIVEXA [Concomitant]
     Active Substance: ABACAVIR SULFATE\LAMIVUDINE
     Indication: HIV INFECTION
     Dosage: 1 UNK, 1D
     Route: 048
     Dates: start: 201505

REACTIONS (11)
  - Headache [Recovered/Resolved]
  - Syncope [Recovered/Resolved]
  - Disorientation [Recovered/Resolved]
  - Syncope [Recovered/Resolved]
  - Fracture [Recovered/Resolved]
  - Generalised tonic-clonic seizure [Recovered/Resolved]
  - Aura [Recovered/Resolved]
  - Dizziness [Recovered/Resolved]
  - Cold sweat [Recovered/Resolved]
  - Speech disorder [Recovered/Resolved]
  - Loss of consciousness [Recovered/Resolved]

NARRATIVE: CASE EVENT DATE: 20150720
